FAERS Safety Report 8845133 (Version 1)
Quarter: 2012Q4

REPORT INFORMATION
  Report Type: Spontaneous
  Country: GB (occurrence: None)
  Receive Date: 20121015
  Receipt Date: 20121015
  Transmission Date: 20130627
  Serious: Yes (Other)
  Sender: FDA-Public Use
  Company Number: 2012P1060556

PATIENT
  Age: 8 Year
  Sex: Female

DRUGS (3)
  1. DEXAMETHASONE [Suspect]
     Indication: ACUTE LYMPHOBLASTIC LEUKAEMIA
     Route: 048
  2. PEG ASPARAGINASE [Suspect]
     Indication: ACUTE LYMPHOBLASTIC LEUKAEMIA
     Dosage: 1,000 IU/M**2; X2, IM
     Route: 030
  3. VINCRISTINE [Concomitant]

REACTIONS (5)
  - Subclavian vein thrombosis [None]
  - Hypertriglyceridaemia [None]
  - Antithrombin III decreased [None]
  - Blood cholesterol increased [None]
  - Hyperbilirubinaemia [None]
